FAERS Safety Report 8762044 (Version 1)
Quarter: 2012Q4

REPORT INFORMATION
  Report Type: 
  Country: US (occurrence: US)
  Receive Date: 20120829
  Receipt Date: 20120829
  Transmission Date: 20130627
  Serious: Yes (Other)
  Sender: FDA-Public Use
  Company Number: US-PFIZER INC-2012208813

PATIENT
  Age: 57 Year
  Sex: Male
  Weight: 68.03 kg

DRUGS (2)
  1. RELPAX [Suspect]
     Indication: MIGRAINE
     Dosage: 40 mg, as needed
     Route: 048
  2. IMITREX [Suspect]
     Indication: MIGRAINE
     Dosage: UNK
     Route: 048

REACTIONS (2)
  - Colon cancer [Recovering/Resolving]
  - Migraine [Unknown]
